FAERS Safety Report 8793880 (Version 1)
Quarter: 2012Q4

REPORT INFORMATION
  Report Type: 
  Country: NL (occurrence: NL)
  Receive Date: 20120917
  Receipt Date: 20120917
  Transmission Date: 20130627
  Serious: Yes (Hospitalization)
  Sender: FDA-Public Use
  Company Number: NL-ELI_LILLY_AND_COMPANY-NL201209001710

PATIENT
  Age: 79 Year
  Sex: Female
  Weight: 70 kg

DRUGS (4)
  1. FORSTEO [Suspect]
     Dosage: 20 ug, qd
     Route: 058
     Dates: start: 20120705, end: 201207
  2. INHIBIN                            /00508201/ [Concomitant]
     Indication: RESTLESS LEGS SYNDROME
     Dosage: 100 mg, qd
     Route: 048
     Dates: start: 2008
  3. SERETIDE [Concomitant]
     Indication: BRONCHITIS CHRONIC
     Dosage: UNK, qd
     Route: 048
  4. OXAZEPAM [Concomitant]
     Indication: RESTLESS LEGS SYNDROME
     Dosage: 10 mg, qd
     Route: 048
     Dates: start: 201208

REACTIONS (7)
  - Hospitalisation [Recovering/Resolving]
  - Dizziness [Not Recovered/Not Resolved]
  - Nausea [Not Recovered/Not Resolved]
  - Fatigue [Not Recovered/Not Resolved]
  - Weight decreased [Not Recovered/Not Resolved]
  - Vomiting [Not Recovered/Not Resolved]
  - Asthenia [Not Recovered/Not Resolved]
